FAERS Safety Report 4849679-0 (Version None)
Quarter: 2005Q4

REPORT INFORMATION
  Report Type: 
  Country: None (occurrence: None)
  Receive Date: 20051115
  Receipt Date: 20051014
  Transmission Date: 20060501
  Serious: No
  Sender: FDA-Public Use
  Company Number: S05-USA-04660-01

PATIENT
  Sex: Female

DRUGS (1)
  1. NAMENDA [Suspect]
     Dates: start: 20050916

REACTIONS (1)
  - DIZZINESS [None]
